FAERS Safety Report 9565755 (Version 2)
Quarter: 2013Q4

REPORT INFORMATION
  Report Type: Spontaneous
  Country: IT (occurrence: IT)
  Receive Date: 20130930
  Receipt Date: 20131031
  Transmission Date: 20140711
  Serious: Yes (Hospitalization)
  Sender: FDA-Public Use
  Company Number: PHHY2013IT107625

PATIENT
  Age: 80 Year
  Sex: Female

DRUGS (10)
  1. FUROSEMIDE [Suspect]
     Dosage: 4 UNITS, ONCE/SINGLE
     Route: 048
  2. COUMADINE [Suspect]
  3. HUMALOG [Concomitant]
  4. LANTUS [Concomitant]
  5. LERCADIP [Concomitant]
  6. LORTAAN [Concomitant]
  7. CATAPRESAN [Concomitant]
  8. KANRENOL [Concomitant]
  9. LANOXIN [Concomitant]
  10. BISOPROLOL [Concomitant]

REACTIONS (3)
  - Oliguria [Unknown]
  - Discomfort [Unknown]
  - International normalised ratio increased [Unknown]
